FAERS Safety Report 8368141-4 (Version None)
Quarter: 2012Q2

REPORT INFORMATION
  Report Type: 
  Country: None (occurrence: None)
  Receive Date: 20120517
  Receipt Date: 20120508
  Transmission Date: 20120825
  Serious: Yes (Hospitalization)
  Sender: FDA-Public Use
  Company Number: US-B.I. PHARMACEUTICALS,INC./RIDGEFIELD-2012-BP-10339BP

PATIENT
  Sex: Male

DRUGS (13)
  1. APIXABAN [Suspect]
     Indication: EMBOLISM
     Route: 048
     Dates: start: 20110519
  2. PRILOSEC [Concomitant]
     Dates: start: 20010101
  3. ROSUVASTATIN [Concomitant]
     Dates: start: 20120320
  4. BACLOFEN [Concomitant]
     Dates: start: 20111021
  5. AUGMENTIN [Concomitant]
     Dates: start: 20120320
  6. MAGNESIUM HYDROXIDE TAB [Concomitant]
     Dates: start: 20120320
  7. FUROSEMIDE [Concomitant]
     Dates: start: 20050101
  8. FLOMAX [Suspect]
     Indication: BENIGN PROSTATIC HYPERPLASIA
     Dosage: 0.4 MG
     Route: 048
     Dates: start: 20120217
  9. PLACEBO [Suspect]
     Indication: EMBOLISM
     Route: 048
     Dates: start: 20110519
  10. QUINAPRIL [Concomitant]
     Dates: start: 20050101
  11. GABAPENTIN [Concomitant]
     Dates: start: 20120322
  12. COREG [Suspect]
     Indication: CARDIAC DISORDER
     Dosage: 6.25 MG
     Route: 048
     Dates: start: 20050101
  13. ASPIRIN [Concomitant]
     Dates: start: 20120322

REACTIONS (3)
  - PRESYNCOPE [None]
  - BRADYCARDIA [None]
  - SYNCOPE [None]
